FAERS Safety Report 10289388 (Version 1)
Quarter: 2014Q3

REPORT INFORMATION
  Report Type: Spontaneous
  Country: GB (occurrence: GB)
  Receive Date: 20140710
  Receipt Date: 20140710
  Transmission Date: 20150326
  Serious: Yes (Other)
  Sender: FDA-Public Use
  Company Number: GB-ACCORD-024684

PATIENT
  Age: 41 Year
  Sex: Female

DRUGS (3)
  1. METHYLPREDNISOLONE [Concomitant]
     Active Substance: METHYLPREDNISOLONE
     Indication: GRAFT VERSUS HOST DISEASE
     Dates: start: 2010
  2. TACROLIMUS. [Suspect]
     Active Substance: TACROLIMUS
     Indication: GRAFT VERSUS HOST DISEASE
     Dosage: TACROLIMUS WAS NOT?STOPPED UNTIL MARCH 2012
     Dates: start: 2010, end: 201203
  3. BUDESONIDE. [Concomitant]
     Active Substance: BUDESONIDE
     Indication: GRAFT VERSUS HOST DISEASE
     Dates: start: 2010

REACTIONS (1)
  - Food allergy [Unknown]
